FAERS Safety Report 16571215 (Version 3)
Quarter: 2019Q3

REPORT INFORMATION
  Report Type: Spontaneous
  Country: JP (occurrence: JP)
  Receive Date: 20190715
  Receipt Date: 20190806
  Transmission Date: 20191004
  Serious: Yes (Life-Threatening, Hospitalization, Other)
  Sender: FDA-Public Use
  Company Number: JP-PFIZER INC-2019293203

PATIENT
  Age: 5 Year
  Sex: Male
  Weight: 16 kg

DRUGS (13)
  1. CUBICIN [Concomitant]
     Active Substance: DAPTOMYCIN
     Indication: FEBRILE NEUTROPENIA
     Dosage: 100 MG, 1X/DAY
     Route: 041
     Dates: start: 20190701, end: 20190702
  2. TEICOPLANIN [Concomitant]
     Active Substance: TEICOPLANIN
     Indication: FEBRILE NEUTROPENIA
     Dosage: 160 MG, 1X/DAY
     Route: 041
     Dates: start: 20190629, end: 20190701
  3. GENTACIN [Concomitant]
     Active Substance: GENTAMICIN SULFATE
     Dosage: UNK
  4. MIDAZOLAM [Concomitant]
     Active Substance: MIDAZOLAM HYDROCHLORIDE
     Dosage: UNK
  5. NEUTROGIN [Concomitant]
     Active Substance: LENOGRASTIM
     Dosage: UNK
  6. KETALAR [Concomitant]
     Active Substance: KETAMINE HYDROCHLORIDE
     Dosage: UNK
  7. PRODIF [Concomitant]
     Active Substance: FOSFLUCONAZOLE
     Indication: CANDIDA SEPSIS
     Dosage: 80 MG, 1X/DAY
     Route: 042
     Dates: start: 20190629, end: 20190726
  8. RAVONAL [Concomitant]
     Active Substance: THIOPENTAL
     Dosage: UNK
  9. ATROPINE SULFATE. [Concomitant]
     Active Substance: ATROPINE SULFATE
     Dosage: UNK
  10. AMBISOME [AMPHOTERICIN B, LIPOSOME] [Concomitant]
     Indication: CANDIDA SEPSIS
     Dosage: 36 MG, 1X/DAY
     Route: 041
     Dates: start: 20190629, end: 20190630
  11. MEROPENEM. [Concomitant]
     Active Substance: MEROPENEM
     Indication: FEBRILE NEUTROPENIA
     Dosage: 0.5 G, 3X/DAY
     Route: 041
     Dates: start: 20190629, end: 20190712
  12. VFEND [Suspect]
     Active Substance: VORICONAZOLE
     Indication: CANDIDA SEPSIS
     Dosage: 140 MG, 2X/DAY
     Route: 041
     Dates: start: 20190630, end: 20190702
  13. NOBELBAR [Concomitant]
     Active Substance: PHENOBARBITAL SODIUM
     Dosage: UNK

REACTIONS (2)
  - Rhabdomyolysis [Recovered/Resolved]
  - Cardiac failure [Unknown]

NARRATIVE: CASE EVENT DATE: 20190701
